FAERS Safety Report 7939915-6 (Version None)
Quarter: 2011Q4

REPORT INFORMATION
  Report Type: 
  Country: None (occurrence: None)
  Receive Date: 20111125
  Receipt Date: 20111121
  Transmission Date: 20120403
  Serious: Yes (Other)
  Sender: FDA-Public Use
  Company Number: BR-PFIZER INC-2011284422

PATIENT
  Sex: Female

DRUGS (5)
  1. ALPRAZOLAM [Suspect]
     Dosage: 0.25 MG, DAILY
     Route: 048
     Dates: start: 20111101, end: 20111101
  2. ALPRAZOLAM [Suspect]
     Indication: ANXIETY
     Dosage: 1 MG, 1X/DAY
     Route: 048
     Dates: start: 20111111, end: 20111101
  3. METFORMIN [Concomitant]
     Indication: TYPE 2 DIABETES MELLITUS
     Dosage: 1700MG, DAILY (2 TABLETS OF 850MG DAILY)
     Dates: start: 20080101
  4. ALPRAZOLAM [Suspect]
     Dosage: 0.5 MG, 1X/DAY
     Route: 048
     Dates: start: 20111101, end: 20111101
  5. ALPRAZOLAM [Suspect]
     Dosage: 0.5MG, DAILY
     Route: 048
     Dates: start: 20111101, end: 20111101

REACTIONS (2)
  - VIOLENCE-RELATED SYMPTOM [None]
  - SOMNOLENCE [None]
